FAERS Safety Report 10559685 (Version 1)
Quarter: 2014Q4

REPORT INFORMATION
  Report Type: Spontaneous
  Country: US (occurrence: None)
  Receive Date: 20141031
  Receipt Date: 20141031
  Transmission Date: 20150529
  Serious: No
  Sender: FDA-Public Use
  Company Number: None

PATIENT
  Sex: Female

DRUGS (1)
  1. HUMIRA [Suspect]
     Active Substance: ADALIMUMAB
     Indication: ENTERITIS
     Dosage: EVERY 10 DAYS
     Route: 058
     Dates: start: 20120303

REACTIONS (2)
  - Breast neoplasm [None]
  - Phyllodes tumour [None]
